FAERS Safety Report 7085422-5 (Version None)
Quarter: 2010Q4

REPORT INFORMATION
  Report Type: 
  Country: None (occurrence: None)
  Receive Date: 20101105
  Receipt Date: 20101101
  Transmission Date: 20110411
  Serious: Yes (Other)
  Sender: FDA-Public Use
  Company Number: ZA-PFIZER INC-2010138611

PATIENT
  Age: 89 Year
  Sex: Male

DRUGS (4)
  1. DETRUSITOL [Suspect]
     Dosage: 4 MG, UNK
     Route: 048
     Dates: start: 20101022
  2. ATROVENT [Concomitant]
     Dosage: UNK
     Route: 055
  3. ELTROXIN [Concomitant]
     Dosage: UNK
     Route: 048
  4. ALPRAZOLAM [Concomitant]
     Dosage: UNK
     Route: 048

REACTIONS (6)
  - DISORIENTATION [None]
  - HALLUCINATION [None]
  - HEART RATE DECREASED [None]
  - METEOROPATHY [None]
  - MIOSIS [None]
  - SOMNOLENCE [None]
